FAERS Safety Report 21984318 (Version 1)
Quarter: 2023Q1

REPORT INFORMATION
  Report Type: Report from Study
  Country: IT (occurrence: IT)
  Receive Date: 20230213
  Receipt Date: 20230213
  Transmission Date: 20230418
  Serious: Yes (Other)
  Sender: FDA-Public Use
  Company Number: None

PATIENT
  Age: 38 Year
  Sex: Male

DRUGS (2)
  1. TECFIDERA [Suspect]
     Active Substance: DIMETHYL FUMARATE
     Indication: Relapsing multiple sclerosis
     Dosage: 240 MG/DAY (FROM MARCH 2022) AND STOPPED IN AUGUST DUE TO TOO LOW LYMPHOCYTE VALUES
     Route: 050
     Dates: start: 20200601
  2. TECFIDERA [Suspect]
     Active Substance: DIMETHYL FUMARATE
     Dosage: 240 MG/DAY (FROM MARCH 2022) AND STOPPED IN AUGUST DUE TO TOO LOW LYMPHOCYTE VALUES
     Route: 050
     Dates: start: 202203, end: 202208

REACTIONS (4)
  - Pharyngeal abscess [Recovered/Resolved]
  - Lymphopenia [Not Recovered/Not Resolved]
  - Panic attack [Unknown]
  - Helicobacter infection [Recovered/Resolved]

NARRATIVE: CASE EVENT DATE: 20220101
